FAERS Safety Report 24991464 (Version 5)
Quarter: 2025Q4

REPORT INFORMATION
  Report Type: Spontaneous
  Country: US (occurrence: US)
  Receive Date: 20250220
  Receipt Date: 20251130
  Transmission Date: 20260118
  Serious: Yes (Other)
  Sender: CSL BEHRING
  Company Number: US-BEH-2025195685

PATIENT
  Age: 66 Year
  Sex: Female
  Weight: 117.5 kg

DRUGS (4)
  1. HAEGARDA [Suspect]
     Active Substance: HUMAN C1-ESTERASE INHIBITOR
     Indication: Hereditary angioedema
     Dosage: 6000 IU EVERY 3 DAYS
     Route: 058
  2. HAEGARDA [Suspect]
     Active Substance: HUMAN C1-ESTERASE INHIBITOR
     Indication: Prophylaxis
     Dosage: 6000 IU/KG
     Route: 058
  3. BERINERT [Suspect]
     Active Substance: HUMAN C1-ESTERASE INHIBITOR
     Indication: Hereditary angioedema
     Dosage: 2500 IU, PRN
     Route: 042
  4. BERINERT [Suspect]
     Active Substance: HUMAN C1-ESTERASE INHIBITOR
     Indication: Hereditary angioedema
     Dosage: 2500 IU, PRN
     Route: 042

REACTIONS (10)
  - Hereditary angioedema [Unknown]
  - Drug ineffective [Unknown]
  - Illness [Unknown]
  - Nasopharyngitis [Unknown]
  - Influenza like illness [Unknown]
  - Device difficult to use [Unknown]
  - Arthralgia [Recovered/Resolved]
  - Arthritis [Unknown]
  - Inflammation [Recovered/Resolved]
  - Nausea [Recovered/Resolved]
